FAERS Safety Report 21405259 (Version 2)
Quarter: 2022Q4

REPORT INFORMATION
  Report Type: Report from Study
  Country: US (occurrence: US)
  Receive Date: 20221004
  Receipt Date: 20221005
  Transmission Date: 20230112
  Serious: Yes (Other)
  Sender: FDA-Public Use
  Company Number: US-ABBVIE-4135718

PATIENT
  Sex: Female

DRUGS (3)
  1. HUMIRA [Suspect]
     Active Substance: ADALIMUMAB
     Indication: Crohn^s disease
     Dosage: CF
     Route: 058
  2. HUMIRA [Suspect]
     Active Substance: ADALIMUMAB
     Indication: Colitis ulcerative
  3. JANSSEN COVID-19 VACCINE [Suspect]
     Active Substance: AD26.COV2.S
     Indication: COVID-19 immunisation
     Dosage: 1ST DOSE 1 IN ONCE
     Route: 030
     Dates: start: 20211101, end: 20211101

REACTIONS (7)
  - Carpal tunnel syndrome [Recovering/Resolving]
  - Animal bite [Recovered/Resolved]
  - Thrombosis [Recovered/Resolved]
  - Feeling abnormal [Unknown]
  - Stress [Recovered/Resolved]
  - Animal bite [Recovering/Resolving]
  - Condition aggravated [Recovered/Resolved]
